FAERS Safety Report 20800851 (Version 2)
Quarter: 2022Q2

REPORT INFORMATION
  Report Type: Report from Study
  Country: GB (occurrence: GB)
  Receive Date: 20220509
  Receipt Date: 20220518
  Transmission Date: 20220721
  Serious: Yes (Hospitalization, Other)
  Sender: FDA-Public Use
  Company Number: GB-KOREA IPSEN Pharma-2022-05267

PATIENT
  Age: 79 Year
  Sex: Male

DRUGS (1)
  1. LANREOTIDE ACETATE [Suspect]
     Active Substance: LANREOTIDE ACETATE
     Indication: Neuroendocrine tumour
     Dosage: 120 MG/ 0.5 ML
     Route: 058

REACTIONS (16)
  - Hospitalisation [Unknown]
  - Resuscitation [Unknown]
  - Terminal state [Unknown]
  - Bedridden [Unknown]
  - Pain [Unknown]
  - Contusion [Unknown]
  - Asthenia [Unknown]
  - Musculoskeletal chest pain [Unknown]
  - Hypotension [Unknown]
  - Heart rate decreased [Unknown]
  - Asthenia [Unknown]
  - Somnolence [Unknown]
  - Decreased appetite [Unknown]
  - Decubitus ulcer [Unknown]
  - Off label use [Unknown]
  - Off label use [Unknown]

NARRATIVE: CASE EVENT DATE: 20220101
